FAERS Safety Report 12254482 (Version 3)
Quarter: 2019Q4

REPORT INFORMATION
  Report Type: Spontaneous
  Country: US (occurrence: US)
  Receive Date: 20160411
  Receipt Date: 20191226
  Transmission Date: 20200122
  Serious: Yes (Other)
  Sender: FDA-Public Use
  Company Number: US-PFIZER INC-2016204668

PATIENT
  Age: 68 Year
  Sex: Male

DRUGS (4)
  1. VIAGRA [Suspect]
     Active Substance: SILDENAFIL CITRATE
     Indication: ERECTILE DYSFUNCTION
     Dosage: 100 MG, AS NEEDED
     Route: 048
     Dates: start: 20050311, end: 20090326
  2. LEVITRA [Concomitant]
     Active Substance: VARDENAFIL HYDROCHLORIDE
     Indication: ERECTILE DYSFUNCTION
     Dosage: UNK (GOT SAMPLE OF 4 PILLS AS NEEDED)
     Dates: start: 2012, end: 2012
  3. CIALIS [Suspect]
     Active Substance: TADALAFIL
     Indication: ERECTILE DYSFUNCTION
     Dosage: UNK
     Route: 048
     Dates: end: 201811
  4. VIAGRA [Suspect]
     Active Substance: SILDENAFIL CITRATE
     Dosage: UNK (4 SEPARATE TIMES AT DIFFERENT DOSAGE)
     Route: 048
     Dates: end: 200909

REACTIONS (1)
  - Malignant melanoma [Recovering/Resolving]

NARRATIVE: CASE EVENT DATE: 20120828
